FAERS Safety Report 6805330-1 (Version None)
Quarter: 2010Q2

REPORT INFORMATION
  Report Type: 
  Country: None (occurrence: None)
  Receive Date: 20100628
  Receipt Date: 20071129
  Transmission Date: 20101027
  Serious: No
  Sender: FDA-Public Use
  Company Number: US-PFIZER INC-2007077976

PATIENT
  Sex: Female
  Weight: 51.818 kg

DRUGS (10)
  1. XALATAN [Suspect]
     Indication: GLAUCOMA
     Dates: start: 20070831
  2. HYDROCORTISONE [Concomitant]
  3. XOPENEX [Concomitant]
  4. IPRATROPIUM [Concomitant]
  5. PLAVIX [Concomitant]
  6. ARICEPT [Concomitant]
  7. HMG COA REDUCTASE INHIBITORS [Concomitant]
  8. NEXIUM [Concomitant]
  9. PEPCID [Concomitant]
  10. ACEON [Concomitant]

REACTIONS (1)
  - CHEST DISCOMFORT [None]
